FAERS Safety Report 12079594 (Version 1)
Quarter: 2016Q1

REPORT INFORMATION
  Report Type: Spontaneous
  Country: US (occurrence: US)
  Receive Date: 20160216
  Receipt Date: 20160216
  Transmission Date: 20160526
  Serious: No
  Sender: FDA-Public Use
  Company Number: US-PFIZER INC-2016066131

PATIENT
  Sex: Male

DRUGS (3)
  1. ADVIL [Suspect]
     Active Substance: IBUPROFEN
     Dosage: 1 DF, 2X/DAY, MORNING AND EVENING
     Dates: start: 20160201, end: 20160201
  2. ADVIL [Suspect]
     Active Substance: IBUPROFEN
     Dosage: UNK
  3. ADVIL [Suspect]
     Active Substance: IBUPROFEN
     Dosage: 1 DF, 1X/DAY; MORNING
     Dates: start: 20160131, end: 20160131

REACTIONS (6)
  - Lip pain [Unknown]
  - Lip swelling [Recovering/Resolving]
  - Urticaria [Recovering/Resolving]
  - Swelling face [Unknown]
  - Blister [Recovering/Resolving]
  - Dysphonia [Unknown]

NARRATIVE: CASE EVENT DATE: 2016
